FAERS Safety Report 4798150-3 (Version None)
Quarter: 2005Q4

REPORT INFORMATION
  Report Type: 
  Country: None (occurrence: None)
  Receive Date: 20051011
  Receipt Date: 20050928
  Transmission Date: 20060501
  Serious: Yes (Other)
  Sender: FDA-Public Use
  Company Number: 2005136214

PATIENT
  Age: 58 Year
  Sex: Female

DRUGS (2)
  1. VIAGRA [Suspect]
     Indication: PULMONARY HYPERTENSION
     Dosage: 75 MG (25 MG, 3 IN 1 D),
  2. ALDACTONE [Concomitant]

REACTIONS (5)
  - ASCITES [None]
  - FLUID RETENTION [None]
  - OEDEMA PERIPHERAL [None]
  - VENOUS PRESSURE JUGULAR INCREASED [None]
  - WEIGHT INCREASED [None]
